FAERS Safety Report 15289808 (Version 3)
Quarter: 2019Q1

REPORT INFORMATION
  Report Type: Spontaneous
  Country: CA (occurrence: CA)
  Receive Date: 20180817
  Receipt Date: 20190104
  Transmission Date: 20190417
  Serious: Yes (Hospitalization)
  Sender: FDA-Public Use
  Company Number: CA-PFIZER INC-2018327767

PATIENT
  Age: 67 Year

DRUGS (2)
  1. MAGNESIUM SULFATE. [Suspect]
     Active Substance: MAGNESIUM SULFATE
     Indication: SUPPLEMENTATION THERAPY
     Dosage: 300 MG, 4X/DAY (300 MG QD; 4 TIMES A DAY)
  2. MAGNESIUM SULFATE. [Suspect]
     Active Substance: MAGNESIUM SULFATE
     Dosage: 300 MG, 1X/DAY (QD, ONCE PER DAY)

REACTIONS (5)
  - Fatigue [Unknown]
  - Diarrhoea [Unknown]
  - Product name confusion [Unknown]
  - Wrong product administered [Unknown]
  - Hypotension [Unknown]
